FAERS Safety Report 6817030-2 (Version None)
Quarter: 2010Q3

REPORT INFORMATION
  Report Type: 
  Country: None (occurrence: None)
  Receive Date: 20100706
  Receipt Date: 20100625
  Transmission Date: 20110219
  Serious: Yes (Hospitalization)
  Sender: FDA-Public Use
  Company Number: ES-ROCHE-706309

PATIENT
  Sex: Male
  Weight: 80 kg

DRUGS (3)
  1. TOCILIZUMAB [Suspect]
     Indication: RHEUMATOID ARTHRITIS
     Dosage: LAST DOSE PRIOR TO SAE: 05 APRIL 2010, TEMPORARILY INTERRUPTED.
     Route: 042
     Dates: start: 20090309, end: 20100430
  2. METHOTREXATE SODIUM [Suspect]
     Indication: RHEUMATOID ARTHRITIS
     Dosage: DOSE WAS BLINDED, LAST DOSE PRIOR TO SAE: 30 APRIL 2010, TEMPORARILY INTERRUPTED.
     Route: 048
     Dates: start: 20090309, end: 20100501
  3. METHOTREXATE SODIUM [Suspect]
     Route: 048

REACTIONS (1)
  - BILIARY COLIC [None]
